FAERS Safety Report 16400263 (Version 1)
Quarter: 2019Q2

REPORT INFORMATION
  Report Type: Spontaneous
  Country: US (occurrence: US)
  Receive Date: 20190606
  Receipt Date: 20190606
  Transmission Date: 20190711
  Serious: No
  Sender: FDA-Public Use
  Company Number: US-ALLERGAN-1843903US

PATIENT
  Sex: Male

DRUGS (1)
  1. KYBELLA [Suspect]
     Active Substance: DEOXYCHOLIC ACID
     Indication: FAT TISSUE INCREASED
     Dosage: ACTUAL: RECEIVED 40 INJECTIONS OR SO INJECTIONS (UNSPECIFIED)
     Route: 058
     Dates: start: 201710, end: 201710

REACTIONS (1)
  - Injection site swelling [Recovered/Resolved]
